FAERS Safety Report 7912557-4 (Version None)
Quarter: 2011Q4

REPORT INFORMATION
  Report Type: 
  Country: None (occurrence: None)
  Receive Date: 20111114
  Receipt Date: 20111112
  Transmission Date: 20120403
  Serious: Yes (Other)
  Sender: FDA-Public Use
  Company Number: US-PFIZER INC-2011277390

PATIENT
  Sex: Female

DRUGS (1)
  1. FLECTOR [Suspect]
     Indication: MUSCULOSKELETAL DISCOMFORT
     Dosage: UNK
     Route: 061
     Dates: start: 20111108

REACTIONS (3)
  - NASOPHARYNGITIS [None]
  - HYPERTENSION [None]
  - HYPERHIDROSIS [None]
